FAERS Safety Report 6413312-7 (Version None)
Quarter: 2009Q4

REPORT INFORMATION
  Report Type: 
  Country: None (occurrence: None)
  Receive Date: 20091022
  Receipt Date: 20091022
  Transmission Date: 20100525
  Serious: Yes (Hospitalization)
  Sender: FDA-Public Use
  Company Number: None

PATIENT
  Sex: Female
  Weight: 52 kg

DRUGS (1)
  1. BORTEZOMIB [Suspect]
     Indication: TRANSPLANT
     Dosage: 1.9 MG 7 DOSES IV, BID X 2 WKS WITH ONE WK REST X 4 WEEKS
     Route: 042

REACTIONS (14)
  - ABDOMINAL PAIN LOWER [None]
  - ABSCESS BACTERIAL [None]
  - BACTERIAL INFECTION [None]
  - BLOOD CULTURE POSITIVE [None]
  - GRAFT COMPLICATION [None]
  - GRAFT INFECTION [None]
  - MEDICAL DEVICE COMPLICATION [None]
  - NAUSEA [None]
  - PYREXIA [None]
  - SEPTIC EMBOLUS [None]
  - STAPHYLOCOCCAL INFECTION [None]
  - VASCULAR GRAFT OCCLUSION [None]
  - VENOUS OCCLUSION [None]
  - VOMITING [None]
